FAERS Safety Report 10651776 (Version 1)
Quarter: 2014Q4

REPORT INFORMATION
  Report Type: Spontaneous
  Country: US (occurrence: US)
  Receive Date: 20141215
  Receipt Date: 20141215
  Transmission Date: 20150529
  Serious: No
  Sender: FDA-Public Use
  Company Number: US-PFIZER INC-2014338363

PATIENT
  Age: 49 Year
  Sex: Female
  Weight: 47 kg

DRUGS (3)
  1. TOVIAZ [Suspect]
     Active Substance: FESOTERODINE FUMARATE
     Indication: HYPERTONIC BLADDER
     Dosage: 4 MG, DAILY (AT NIGHT)
     Route: 048
     Dates: start: 20141203, end: 20141205
  2. DOXYCYCLINE. [Concomitant]
     Active Substance: DOXYCYCLINE
     Indication: SINUSITIS
     Dosage: 100 MG, 2X/DAY
     Route: 048
  3. KLONOPIN [Concomitant]
     Active Substance: CLONAZEPAM
     Dosage: 2 MG, DAILY
     Route: 048

REACTIONS (4)
  - Drug ineffective [Not Recovered/Not Resolved]
  - Gastrointestinal stoma complication [Not Recovered/Not Resolved]
  - Stoma site irritation [Not Recovered/Not Resolved]
  - Medication residue present [Not Recovered/Not Resolved]

NARRATIVE: CASE EVENT DATE: 20141204
